FAERS Safety Report 5773587-4 (Version None)
Quarter: 2008Q2

REPORT INFORMATION
  Report Type: 
  Country: None (occurrence: None)
  Receive Date: 20080616
  Receipt Date: 20080602
  Transmission Date: 20081010
  Serious: Yes (Death)
  Sender: FDA-Public Use
  Company Number: TR-BAUSCH-2008BL002573

PATIENT
  Age: 55 Year
  Sex: Male

DRUGS (1)
  1. CYCLOPENTOLATE HYDROCHLORIDE OPHTHALMIC SOLUTION USP 1% [Suspect]
     Indication: FUNDOSCOPY
     Route: 047

REACTIONS (3)
  - BLOOD GLUCOSE INCREASED [None]
  - BRAIN STEM HAEMORRHAGE [None]
  - COMA [None]
